FAERS Safety Report 9340725 (Version 1)
Quarter: 2013Q2

REPORT INFORMATION
  Report Type: Report from Study
  Country: US (occurrence: US)
  Receive Date: 20130610
  Receipt Date: 20130610
  Transmission Date: 20140414
  Serious: Yes (Hospitalization, Other)
  Sender: FDA-Public Use
  Company Number: US-BAXTER-2013BAX021321

PATIENT
  Sex: Female
  Weight: 58.18 kg

DRUGS (5)
  1. GAMMAGARD LIQUID [Suspect]
     Indication: HAEMOLYTIC ANAEMIA
     Route: 042
     Dates: start: 2012, end: 201305
  2. GAMMAGARD LIQUID [Suspect]
     Indication: OFF LABEL USE
  3. NEURONTIN [Concomitant]
     Indication: MUSCULOSKELETAL DISORDER
     Route: 048
  4. TYLENOL [Concomitant]
     Indication: BACK DISORDER
     Route: 048
  5. PREVACID [Concomitant]
     Indication: GASTRIC DISORDER
     Route: 048

REACTIONS (2)
  - Therapeutic response decreased [Unknown]
  - Malaise [Not Recovered/Not Resolved]
